FAERS Safety Report 11115122 (Version 1)
Quarter: 2015Q2

REPORT INFORMATION
  Report Type: Spontaneous
  Country: US (occurrence: None)
  Receive Date: 20150507
  Receipt Date: 20150507
  Transmission Date: 20150821
  Serious: Yes (Other)
  Sender: FDA-Public Use
  Company Number: 2015AP006363

PATIENT
  Age: 16 Year
  Sex: Female

DRUGS (5)
  1. SERTRALINE HYDROCHLORIDE (SERTRALINE)                         TABLET [Suspect]
     Active Substance: SERTRALINE HYDROCHLORIDE
     Indication: AFFECTIVE DISORDER
  2. ARIPIPRAZOLE. [Concomitant]
     Active Substance: ARIPIPRAZOLE
  3. LITHIUM. [Concomitant]
     Active Substance: LITHIUM
  4. ELETRIPTAN (ELETRIPTAN) [Suspect]
     Active Substance: ELETRIPTAN
     Indication: MIGRAINE
  5. METHYLPHENIDATE [Concomitant]
     Active Substance: METHYLPHENIDATE

REACTIONS (2)
  - Condition aggravated [None]
  - Reversible cerebral vasoconstriction syndrome [None]
